FAERS Safety Report 11603724 (Version 1)
Quarter: 2015Q4

REPORT INFORMATION
  Report Type: Spontaneous
  Country: US (occurrence: US)
  Receive Date: 20151007
  Receipt Date: 20151007
  Transmission Date: 20160304
  Serious: Yes (Other)
  Sender: FDA-Public Use
  Company Number: US-LEO PHARMA-237332

PATIENT
  Age: 57 Year
  Sex: Male

DRUGS (1)
  1. PICATO [Suspect]
     Active Substance: INGENOL MEBUTATE
     Indication: ACTINIC KERATOSIS

REACTIONS (4)
  - Application site oedema [Unknown]
  - Corneal graft rejection [Recovered/Resolved]
  - Application site erythema [Unknown]
  - Application site exfoliation [Unknown]
